FAERS Safety Report 8025128-9 (Version None)
Quarter: 2012Q1

REPORT INFORMATION
  Report Type: 
  Country: None (occurrence: None)
  Receive Date: 20120105
  Receipt Date: 20111226
  Transmission Date: 20120608
  Serious: Yes (Other)
  Sender: FDA-Public Use
  Company Number: US-ROCHE-1025787

PATIENT

DRUGS (1)
  1. BONIVA [Suspect]
     Indication: BREAST CANCER METASTATIC
     Route: 042

REACTIONS (3)
  - PAIN IN JAW [None]
  - ENAMEL ANOMALY [None]
  - OSTEONECROSIS OF JAW [None]
